FAERS Safety Report 7199154-6 (Version None)
Quarter: 2010Q4

REPORT INFORMATION
  Report Type: 
  Country: None (occurrence: None)
  Receive Date: 20101214
  Receipt Date: 20101129
  Transmission Date: 20110411
  Serious: Yes (Hospitalization, Other)
  Sender: FDA-Public Use
  Company Number: 2010P1002912

PATIENT
  Age: 76 Year
  Sex: Male
  Weight: 63.5036 kg

DRUGS (35)
  1. FENTANYL-25 [Suspect]
     Indication: PAIN
     Dosage: 25 MCG/HR; Q72 HR; TDER
     Route: 062
     Dates: start: 20100712, end: 20100901
  2. HYDROCODONE-ACETAMINOPHEN 5-500 MG (NO PREF. NAME) [Suspect]
     Indication: PAIN
     Dosage: 1-2 TABLETS; Q4H PRN; PO
     Route: 048
  3. FERROUS SULFATE (NO PREF. NAME) [Suspect]
     Dosage: 325 MG; QD; PO
     Route: 048
  4. LORAZEPAM [Suspect]
     Indication: ANXIETY
     Dosage: ; TID; PRN; PO
     Route: 048
  5. PHENERGAN [Suspect]
     Indication: NAUSEA
     Dosage: ; Q6H PRN;
  6. NIFEDIPINE [Concomitant]
  7. PREDNISONE [Concomitant]
  8. NEXIUM [Concomitant]
  9. HYDROXYCHLOROQUINE [Concomitant]
  10. AZATHIOPRINE [Concomitant]
  11. MIRALAX [Concomitant]
  12. NEURPATH [Concomitant]
  13. TAMSULOSIN HCL [Concomitant]
  14. GLUCOSAMINE 500 MG [Concomitant]
  15. BUPROPION HCL 150 MG (WELLBUTRIN) [Concomitant]
  16. FLOMAX [Concomitant]
  17. OYSTER SHELL CALCIUM 500 PLUS D 500-200 MG [Concomitant]
  18. ACTOS [Concomitant]
  19. SENOKOT S 8.6-50 MG [Concomitant]
  20. ASPIRIN [Concomitant]
  21. COLACE (DOCUSATE SODIUM) 100 MG [Concomitant]
  22. PLAVIX [Concomitant]
  23. ECOTRIN LOW STRENGTH 81 MG DELAYED RELEASE [Concomitant]
  24. VITAMIN B-12 1000 MCG [Concomitant]
  25. PANTOPRAZOLE SODIUM 40 MG (PROTONIX) [Concomitant]
  26. VITAMIN D 5000 UNITS [Concomitant]
  27. WARFARIN SODIUM 5 MG (COUMADIN) [Concomitant]
  28. MILK OF MAGNESIA [Concomitant]
  29. CENTRUM MULTIVITAMIN [Concomitant]
  30. ZOFRAN [Concomitant]
  31. DURAGESIC 75 MC/HR [Concomitant]
  32. BENEFIBER [Concomitant]
  33. DICYCLOMINE [Concomitant]
  34. NAMENDA [Concomitant]
  35. GLYCERIN SUPPOSITORY [Concomitant]

REACTIONS (16)
  - ABDOMINAL PAIN [None]
  - ANAEMIA [None]
  - BLOOD CREATININE INCREASED [None]
  - COGNITIVE DISORDER [None]
  - DEMENTIA [None]
  - FAECALOMA [None]
  - GASTRITIS VIRAL [None]
  - HAEMORRHOIDS [None]
  - HYPERLIPIDAEMIA [None]
  - MENTAL STATUS CHANGES [None]
  - MICROCYTIC ANAEMIA [None]
  - MUSCLE SPASMS [None]
  - NAUSEA [None]
  - SKIN NECROSIS [None]
  - TRANSIENT ISCHAEMIC ATTACK [None]
  - VOMITING [None]
